FAERS Safety Report 24591588 (Version 1)
Quarter: 2024Q4

REPORT INFORMATION
  Report Type: Spontaneous
  Country: US (occurrence: US)
  Receive Date: 20241108
  Receipt Date: 20241108
  Transmission Date: 20250114
  Serious: No
  Sender: OTSUKA
  Company Number: US-OTSUKA-2024_022612

PATIENT
  Age: 29 Year
  Sex: Female

DRUGS (3)
  1. ABILIFY ASIMTUFII [Suspect]
     Active Substance: ARIPIPRAZOLE
     Indication: Bipolar I disorder
     Dosage: 720 MG (RIGHT VENTROGLUTEAL AREA)
     Route: 065
     Dates: start: 20240710
  2. ABILIFY [Suspect]
     Active Substance: ARIPIPRAZOLE
     Indication: Bipolar disorder
     Dosage: UNK
     Route: 048
     Dates: start: 202403, end: 202406
  3. ABILIFY [Suspect]
     Active Substance: ARIPIPRAZOLE
     Dosage: UNK
     Route: 048

REACTIONS (9)
  - Groin pain [Not Recovered/Not Resolved]
  - Axillary pain [Unknown]
  - Asymptomatic bacteriuria [Unknown]
  - Peripheral swelling [Unknown]
  - Urinary tract infection [Unknown]
  - Pain [Unknown]
  - Pain in extremity [Unknown]
  - Arthralgia [Unknown]
  - Treatment noncompliance [Unknown]

NARRATIVE: CASE EVENT DATE: 20240101
